FAERS Safety Report 14270664 (Version 1)
Quarter: 2017Q4

REPORT INFORMATION
  Report Type: Spontaneous
  Country: JP (occurrence: JP)
  Receive Date: 20171211
  Receipt Date: 20171211
  Transmission Date: 20180321
  Serious: Yes (Death, Other)
  Sender: FDA-Public Use
  Company Number: JP-OTSUKA-BJ20095610

PATIENT
  Age: 57 Year
  Sex: Male
  Weight: 60 kg

DRUGS (18)
  1. ABILIFY [Suspect]
     Active Substance: ARIPIPRAZOLE
     Dosage: 30 MG, QD
     Route: 048
     Dates: start: 20090922, end: 20091020
  2. TETRAMIDE [Concomitant]
     Active Substance: MIANSERIN
     Dosage: 40 MG, QD
     Route: 048
     Dates: start: 20090728, end: 20090810
  3. ABILIFY [Suspect]
     Active Substance: ARIPIPRAZOLE
     Indication: HALLUCINATION
     Dosage: 12 MG, QD
     Route: 048
     Dates: start: 20090811, end: 20090817
  4. TETRAMIDE [Concomitant]
     Active Substance: MIANSERIN
     Indication: INSOMNIA
     Dosage: 20 MG, QD
     Route: 048
     Dates: start: 20090623, end: 20090727
  5. TETRAMIDE [Concomitant]
     Active Substance: MIANSERIN
     Dosage: 60 MG, QD
     Route: 048
     Dates: start: 20090811, end: 20091104
  6. FLUVOXAMINE [Concomitant]
     Active Substance: FLUVOXAMINE
     Indication: PRODUCT USED FOR UNKNOWN INDICATION
     Dosage: UNK
     Route: 065
     Dates: start: 20091006, end: 20091104
  7. ABILIFY [Suspect]
     Active Substance: ARIPIPRAZOLE
     Indication: DELUSION
     Dosage: 24 MG, QD
     Route: 048
     Dates: start: 20090818, end: 20090921
  8. LEVOTOMIN [Concomitant]
     Active Substance: LEVOMEPROMAZINE
     Indication: INSOMNIA
     Dosage: 25 MG, QD
     Route: 048
     Dates: start: 20090811, end: 20091104
  9. LUVOX [Concomitant]
     Active Substance: FLUVOXAMINE MALEATE
     Indication: STEREOTYPY
     Dosage: 25 MG, BID
     Route: 048
     Dates: start: 20091006, end: 20091012
  10. LUVOX [Concomitant]
     Active Substance: FLUVOXAMINE MALEATE
     Dosage: 50 MG, BID
     Route: 048
     Dates: start: 20091013, end: 20091104
  11. RISPERDAL [Concomitant]
     Active Substance: RISPERIDONE
     Indication: DELUSION
  12. CARBAMAZEPINE. [Concomitant]
     Active Substance: CARBAMAZEPINE
     Indication: PRODUCT USED FOR UNKNOWN INDICATION
     Dosage: UNK
     Route: 065
     Dates: end: 20091104
  13. LEXIN [Concomitant]
     Active Substance: CEPHALEXIN
     Indication: EPILEPSY
     Dosage: 200 MG, TID
     Route: 048
     Dates: end: 20091104
  14. MAGMITT [Concomitant]
     Active Substance: MAGNESIUM OXIDE
     Indication: CONSTIPATION
     Dosage: 660 MG, TID
     Route: 048
     Dates: start: 20090915, end: 20091104
  15. RISPERDAL [Concomitant]
     Active Substance: RISPERIDONE
     Indication: HALLUCINATION
     Dosage: 2 MG, BID
     Route: 048
     Dates: start: 20091027, end: 20091103
  16. LEVOMEPROMAZIN [Concomitant]
     Active Substance: LEVOMEPROMAZINE
     Indication: PRODUCT USED FOR UNKNOWN INDICATION
     Dosage: UNK
     Route: 065
     Dates: start: 20090811, end: 20091104
  17. AKINETON [Concomitant]
     Active Substance: BIPERIDEN HYDROCHLORIDE
     Indication: PRODUCT USED FOR UNKNOWN INDICATION
     Dosage: UNK
     Route: 065
  18. ALLEGRA [Concomitant]
     Active Substance: FEXOFENADINE HYDROCHLORIDE
     Indication: RASH
     Dosage: 60 MG, BID
     Route: 048
     Dates: start: 20090602, end: 20091104

REACTIONS (5)
  - Cerebral infarction [Fatal]
  - Delusion [Unknown]
  - Hallucination [Unknown]
  - Abnormal behaviour [Unknown]
  - Hypertension [Recovering/Resolving]

NARRATIVE: CASE EVENT DATE: 20091019
